FAERS Safety Report 4720508-9 (Version None)
Quarter: 2005Q3

REPORT INFORMATION
  Report Type: 
  Country: None (occurrence: None)
  Receive Date: 20050721
  Receipt Date: 20050318
  Transmission Date: 20060218
  Serious: No
  Sender: FDA-Public Use
  Company Number: US-BRISTOL-MYERS SQUIBB COMPANY-12903829

PATIENT
  Sex: Female

DRUGS (3)
  1. GLUCOVANCE [Suspect]
     Dosage: 1 DOSAGE FORM = GLYBURIDE DOSE NOT PROVIDED, METFORMIN HCL DOSE 500MG
  2. GERITOL [Concomitant]
  3. B12 [Concomitant]

REACTIONS (1)
  - SOMNOLENCE [None]
